FAERS Safety Report 5129309-3 (Version None)
Quarter: 2006Q4

REPORT INFORMATION
  Report Type: 
  Country: None (occurrence: None)
  Receive Date: 20061018
  Receipt Date: 20060927
  Transmission Date: 20070319
  Serious: Yes (Other)
  Sender: FDA-Public Use
  Company Number: PHBS2006JP15056

PATIENT
  Age: 7 Year
  Sex: Female

DRUGS (4)
  1. TEGRETOL [Suspect]
     Indication: COMPLEX PARTIAL SEIZURES
     Route: 048
  2. VALPROATE SODIUM [Concomitant]
     Indication: COMPLEX PARTIAL SEIZURES
  3. CLOBAZAM [Concomitant]
     Indication: COMPLEX PARTIAL SEIZURES
  4. PHENYTOIN [Concomitant]
     Indication: COMPLEX PARTIAL SEIZURES

REACTIONS (3)
  - ELECTROENCEPHALOGRAM ABNORMAL [None]
  - MUSCLE TWITCHING [None]
  - MYOCLONIC EPILEPSY [None]
